FAERS Safety Report 20699309 (Version 1)
Quarter: 2022Q2

REPORT INFORMATION
  Report Type: Spontaneous
  Country: US (occurrence: None)
  Receive Date: 20220411
  Receipt Date: 20220411
  Transmission Date: 20220721
  Serious: Yes (Death)
  Sender: FDA-Public Use
  Company Number: None

PATIENT
  Sex: Female

DRUGS (1)
  1. REMICADE [Suspect]
     Active Substance: INFLIXIMAB
     Indication: Plasma cell myeloma
     Dosage: FREQUENCY : WEEKLY;?OTHER ROUTE : IV;?
     Route: 050
     Dates: start: 201908

REACTIONS (1)
  - Death [None]
